FAERS Safety Report 25220001 (Version 1)
Quarter: 2025Q2

REPORT INFORMATION
  Report Type: Other
  Country: IT (occurrence: IT)
  Receive Date: 20250421
  Receipt Date: 20250421
  Transmission Date: 20250717
  Serious: Yes (Hospitalization, Other)
  Sender: OMNIVIUM PHARMACEUTICALS LLC
  Company Number: IT-Omnivium Pharmaceuticals LLC-2175257

PATIENT
  Age: 26 Year
  Sex: Male

DRUGS (9)
  1. ISONIAZID [Suspect]
     Active Substance: ISONIAZID
     Indication: Disseminated tuberculosis
  2. RIFAMPIN [Suspect]
     Active Substance: RIFAMPIN
  3. AMIKACIN SULFATE [Concomitant]
     Active Substance: AMIKACIN SULFATE
  4. VANCOMYCIN HYDROCHLORIDE [Concomitant]
     Active Substance: VANCOMYCIN HYDROCHLORIDE
  5. PIPERACILLIN AND TAZOBACTAM [Concomitant]
     Active Substance: PIPERACILLIN SODIUM\TAZOBACTAM SODIUM
  6. PREDNISONE [Concomitant]
     Active Substance: PREDNISONE
  7. MOXIFLOXACIN [Suspect]
     Active Substance: MOXIFLOXACIN
  8. PYRAZINAMIDE [Suspect]
     Active Substance: PYRAZINAMIDE
  9. ETHAMBUTOL [Suspect]
     Active Substance: ETHAMBUTOL HYDROCHLORIDE

REACTIONS (5)
  - Haemophagocytic lymphohistiocytosis [Recovering/Resolving]
  - Drug-induced liver injury [Recovering/Resolving]
  - Paradoxical drug reaction [Recovering/Resolving]
  - Condition aggravated [Recovering/Resolving]
  - Disseminated tuberculosis [Recovering/Resolving]
